FAERS Safety Report 12578027 (Version 1)
Quarter: 2016Q3

REPORT INFORMATION
  Report Type: Spontaneous
  Country: US (occurrence: None)
  Receive Date: 20160720
  Receipt Date: 20160720
  Transmission Date: 20161109
  Serious: No
  Sender: FDA-Public Use
  Company Number: None

PATIENT
  Age: 31 Year
  Sex: Female

DRUGS (1)
  1. LIDOCAINE 5% PATCH MYLAN [Suspect]
     Active Substance: LIDOCAINE
     Indication: BACK PAIN
     Dosage: APPLY 2 PATCHES ONCE DAILY TOPICAL
     Route: 061
     Dates: start: 20160630, end: 20160702

REACTIONS (3)
  - Drug effect decreased [None]
  - Product adhesion issue [None]
  - Product quality issue [None]

NARRATIVE: CASE EVENT DATE: 20160630
